FAERS Safety Report 5246108-2 (Version None)
Quarter: 2007Q1

REPORT INFORMATION
  Report Type: 
  Country: None (occurrence: None)
  Receive Date: 20061201
  Receipt Date: 20060724
  Transmission Date: 20070707
  Serious: No
  Sender: FDA-Public Use
  Company Number: 2006PV018113

PATIENT
  Age: 72 Year
  Sex: Male

DRUGS (6)
  1. BYETTA [Suspect]
     Indication: DIABETES MELLITUS NON-INSULIN-DEPENDENT
     Dosage: 5 MCG;BID;SC
     Route: 058
     Dates: start: 20060723
  2. AMARYL [Concomitant]
  3. ACTOS [Concomitant]
  4. COUMADIN [Concomitant]
  5. PROTONIX [Concomitant]
  6. ANTIBIOTIC [Concomitant]

REACTIONS (4)
  - DISORIENTATION [None]
  - HYPOAESTHESIA ORAL [None]
  - HYPOGLYCAEMIA [None]
  - INJECTION SITE HAEMORRHAGE [None]
